FAERS Safety Report 24856208 (Version 1)
Quarter: 2025Q1

REPORT INFORMATION
  Report Type: Spontaneous
  Country: AR (occurrence: AR)
  Receive Date: 20250117
  Receipt Date: 20250117
  Transmission Date: 20250409
  Serious: Yes (Hospitalization)
  Sender: BAYER HEALTHCARE PHARMACEUTICALS INC.
  Company Number: AR-BAYER-2025A007891

PATIENT
  Age: 48 Year
  Sex: Female

DRUGS (1)
  1. ULTRAVIST [Suspect]
     Active Substance: IOPROMIDE
     Indication: Product used for unknown indication
     Dates: start: 20250110, end: 20250110

REACTIONS (3)
  - Rash [Unknown]
  - Eyelid oedema [Unknown]
  - Dysphonia [Unknown]

NARRATIVE: CASE EVENT DATE: 20250110
